FAERS Safety Report 13737907 (Version 1)
Quarter: 2017Q3

REPORT INFORMATION
  Report Type: Spontaneous
  Country: US (occurrence: US)
  Receive Date: 20170710
  Receipt Date: 20170710
  Transmission Date: 20171127
  Serious: Yes (Other)
  Sender: FDA-Public Use
  Company Number: US-SAOL THERAPEUTICS-2016SAO01027

PATIENT
  Sex: Male

DRUGS (5)
  1. MARCAINE [Suspect]
     Active Substance: BUPIVACAINE HYDROCHLORIDE
     Route: 037
  2. UNSPECIFIED PRODUCT [Suspect]
     Active Substance: UNSPECIFIED INGREDIENT
     Dosage: 480 ?G, \DAY
     Route: 037
  3. BACLOFEN. [Suspect]
     Active Substance: BACLOFEN
     Dosage: 240 ?G, \DAY
     Route: 037
  4. CLONIDINE. [Suspect]
     Active Substance: CLONIDINE
     Dosage: 0.961 MG, \DAY
     Route: 037
  5. FENTANYL. [Suspect]
     Active Substance: FENTANYL
     Dosage: 240 ?G, \DAY
     Route: 037

REACTIONS (3)
  - Complication associated with device [Recovered/Resolved]
  - Device infusion issue [Recovered/Resolved]
  - Therapy non-responder [Recovered/Resolved]
